FAERS Safety Report 8327683-8 (Version None)
Quarter: 2012Q2

REPORT INFORMATION
  Report Type: 
  Country: None (occurrence: None)
  Receive Date: 20120502
  Receipt Date: 20120418
  Transmission Date: 20120825
  Serious: Yes (Other)
  Sender: FDA-Public Use
  Company Number: CN-JNJFOC-20110705923

PATIENT
  Sex: Female

DRUGS (1)
  1. RISPERDAL [Suspect]
     Indication: SCHIZOPHRENIA
     Dosage: 1MG AT NOON AND 2MG AT NIGHT
     Route: 048
     Dates: start: 20010717, end: 20110713

REACTIONS (1)
  - THYROID NEOPLASM [None]
